FAERS Safety Report 15560494 (Version 1)
Quarter: 2018Q4

REPORT INFORMATION
  Report Type: Spontaneous
  Country: US (occurrence: US)
  Receive Date: 20181029
  Receipt Date: 20181029
  Transmission Date: 20190205
  Serious: Yes (Disabling)
  Sender: FDA-Public Use
  Company Number: None

PATIENT
  Age: 47 Year
  Sex: Female
  Weight: 54.9 kg

DRUGS (9)
  1. CYTOMEL [Concomitant]
     Active Substance: LIOTHYRONINE SODIUM
  2. NATURE-THROID [Suspect]
     Active Substance: THYROID, PORCINE
     Indication: POST PROCEDURAL HYPOTHYROIDISM
     Dosage: ?          QUANTITY:1 TABLET(S);?
     Route: 048
     Dates: start: 20180615, end: 20180706
  3. VITAMIN C [Concomitant]
     Active Substance: ASCORBIC ACID
  4. IRON [Concomitant]
     Active Substance: IRON
  5. ZBEC [Concomitant]
  6. TIROSINT [Concomitant]
     Active Substance: LEVOTHYROXINE SODIUM
  7. VITAMIN D3 [Concomitant]
     Active Substance: CHOLECALCIFEROL
  8. VITAMIN B COMPLEX [Concomitant]
     Active Substance: CYANOCOBALAMIN\DEXPANTHENOL\NIACINAMIDE\PYRIDOXINE HYDROCHLORIDE\RIBOFLAVIN 5^-PHOSPHATE SODIUM\THIAMINE HYDROCHLORIDE\VITAMIN B COMPLEX
  9. VITAMIN B12 [Concomitant]
     Active Substance: CYANOCOBALAMIN

REACTIONS (9)
  - Alopecia [None]
  - Depression [None]
  - Fatigue [None]
  - Weight increased [None]
  - Dry skin [None]
  - Myalgia [None]
  - Hypothyroidism [None]
  - Insomnia [None]
  - Muscle spasms [None]

NARRATIVE: CASE EVENT DATE: 20180628
